FAERS Safety Report 20627030 (Version 2)
Quarter: 2022Q2

REPORT INFORMATION
  Report Type: Other
  Country: US (occurrence: None)
  Receive Date: 20220323
  Receipt Date: 20220405
  Transmission Date: 20220720
  Serious: Yes (Other)
  Sender: FDA-Public Use
  Company Number: US-ROCHE-3046688

PATIENT
  Sex: Female
  Weight: 41.3 kg

DRUGS (2)
  1. NUTROPIN [Suspect]
     Active Substance: SOMATROPIN
     Indication: Hypopituitarism
     Dosage: 10 MG/2ML PEN INJECTOR, INJECT 1.4 MG UNDER THE SKIN NIGHTLY
     Route: 058
     Dates: start: 20200302
  2. NUTROPIN [Suspect]
     Active Substance: SOMATROPIN

REACTIONS (1)
  - Growth retardation [Unknown]
